FAERS Safety Report 9587409 (Version 2)
Quarter: 2013Q4

REPORT INFORMATION
  Report Type: Spontaneous
  Country: AU (occurrence: AU)
  Receive Date: 20131003
  Receipt Date: 20131029
  Transmission Date: 20140711
  Serious: Yes (Hospitalization)
  Sender: FDA-Public Use
  Company Number: AU-ASTRAZENECA-2013SE71548

PATIENT
  Age: 13971 Day
  Sex: Male

DRUGS (3)
  1. NEXIUM HP7 [Suspect]
     Route: 048
  2. AMOXIL [Suspect]
  3. KLACID [Suspect]

REACTIONS (2)
  - Meningitis viral [Unknown]
  - Headache [Unknown]
